FAERS Safety Report 14562040 (Version 1)
Quarter: 2018Q1

REPORT INFORMATION
  Report Type: Spontaneous
  Country: US (occurrence: US)
  Receive Date: 20180221
  Receipt Date: 20180221
  Transmission Date: 20180509
  Serious: Yes (Hospitalization)
  Sender: FDA-Public Use
  Company Number: None

PATIENT
  Age: 56 Year
  Sex: Male
  Weight: 90 kg

DRUGS (1)
  1. ACTEMRA [Suspect]
     Active Substance: TOCILIZUMAB
     Indication: TEMPORAL ARTERITIS
     Dosage: ?          QUANTITY:1 INJECTION(S);OTHER FREQUENCY:ONCE A WEEK;OTHER ROUTE:SUBCUTANEOUS INJECTION?
     Route: 058
     Dates: start: 20171101, end: 20171116

REACTIONS (2)
  - Streptococcal infection [None]
  - Sepsis [None]

NARRATIVE: CASE EVENT DATE: 20171119
